FAERS Safety Report 6159588-5 (Version None)
Quarter: 2009Q2

REPORT INFORMATION
  Report Type: 
  Country: None (occurrence: None)
  Receive Date: 20090420
  Receipt Date: 20090417
  Transmission Date: 20091009
  Serious: Yes (Death)
  Sender: FDA-Public Use
  Company Number: DK-ASTRAZENECA-2009SE01182

PATIENT
  Age: 10753 Day
  Sex: Male

DRUGS (3)
  1. SEROQUEL [Suspect]
     Route: 048
     Dates: start: 20080727
  2. SEROQUEL [Suspect]
     Route: 048
     Dates: start: 20081125
  3. ANTIDEPRESSANTS [Concomitant]

REACTIONS (1)
  - DEATH [None]
